FAERS Safety Report 11720515 (Version 1)
Quarter: 2015Q4

REPORT INFORMATION
  Report Type: Spontaneous
  Country: IL (occurrence: IL)
  Receive Date: 20151110
  Receipt Date: 20151110
  Transmission Date: 20160304
  Serious: Yes (Other)
  Sender: FDA-Public Use
  Company Number: IL-MYLANLABS-2015M1037441

PATIENT

DRUGS (8)
  1. VINCRISTINE [Suspect]
     Active Substance: VINCRISTINE
     Indication: PRIMARY MEDIASTINAL LARGE B-CELL LYMPHOMA
     Route: 065
  2. METHOTREXATE [Suspect]
     Active Substance: METHOTREXATE
     Indication: PRIMARY MEDIASTINAL LARGE B-CELL LYMPHOMA
     Route: 065
  3. DOXORUBICIN [Suspect]
     Active Substance: DOXORUBICIN
     Indication: PRIMARY MEDIASTINAL LARGE B-CELL LYMPHOMA
     Route: 065
  4. RITUXIMAB [Suspect]
     Active Substance: RITUXIMAB
     Indication: PRIMARY MEDIASTINAL LARGE B-CELL LYMPHOMA
     Route: 065
  5. FOLINIC ACID [Suspect]
     Active Substance: LEUCOVORIN
     Indication: PRIMARY MEDIASTINAL LARGE B-CELL LYMPHOMA
     Route: 065
  6. CYCLOPHOSPHAMIDE. [Suspect]
     Active Substance: CYCLOPHOSPHAMIDE
     Indication: PRIMARY MEDIASTINAL LARGE B-CELL LYMPHOMA
     Route: 065
  7. BLEOMYCIN [Suspect]
     Active Substance: BLEOMYCIN SULFATE
     Indication: PRIMARY MEDIASTINAL LARGE B-CELL LYMPHOMA
     Route: 065
  8. PREDNISONE. [Suspect]
     Active Substance: PREDNISONE
     Indication: PRIMARY MEDIASTINAL LARGE B-CELL LYMPHOMA
     Route: 065

REACTIONS (1)
  - Breast cancer [Unknown]
